FAERS Safety Report 7474328-5 (Version None)
Quarter: 2011Q2

REPORT INFORMATION
  Report Type: 
  Country: None (occurrence: None)
  Receive Date: 20110511
  Receipt Date: 20110506
  Transmission Date: 20111010
  Serious: Yes (Death, Hospitalization)
  Sender: FDA-Public Use
  Company Number: US-AMGEN-USASP2011024026

PATIENT
  Sex: Female

DRUGS (2)
  1. NPLATE [Suspect]
     Indication: THROMBOCYTOPENIA
     Dosage: 3 A?G/KG, UNK
     Dates: start: 20110215, end: 20110322
  2. DANAZOL [Concomitant]

REACTIONS (2)
  - RENAL FAILURE [None]
  - HOSPITALISATION [None]
